FAERS Safety Report 16940260 (Version 6)
Quarter: 2020Q4

REPORT INFORMATION
  Report Type: Spontaneous
  Country: BR (occurrence: BR)
  Receive Date: 20191021
  Receipt Date: 20201012
  Transmission Date: 20210113
  Serious: Yes (Other)
  Sender: FDA-Public Use
  Company Number: BR-AMGEN-BRASP2019173002

PATIENT
  Age: 53 Year
  Sex: Female
  Weight: 92 kg

DRUGS (5)
  1. DIPYRONE [Concomitant]
     Active Substance: DIPYRONE
     Dosage: UNK
  2. ENBREL [Suspect]
     Active Substance: ETANERCEPT
     Indication: RHEUMATOID ARTHRITIS
     Dosage: 50 MG, ONCE A WEEK
     Route: 065
     Dates: start: 20131215
  3. ENBREL [Suspect]
     Active Substance: ETANERCEPT
     Dosage: UNK
     Route: 065
  4. OMEGA 3 [FISH OIL;VITAMIN E NOS] [Concomitant]
     Dosage: UNK
  5. COLLAGEN 2 AND GAG [Concomitant]
     Dosage: UNK

REACTIONS (21)
  - Neuropathy peripheral [Unknown]
  - Osteoarthritis [Unknown]
  - Musculoskeletal stiffness [Unknown]
  - Therapeutic product effect incomplete [Not Recovered/Not Resolved]
  - Feeling abnormal [Unknown]
  - Rheumatic disorder [Unknown]
  - Nervousness [Unknown]
  - Arthropathy [Unknown]
  - Gait inability [Unknown]
  - Sleep disorder due to general medical condition, insomnia type [Unknown]
  - Peripheral swelling [Unknown]
  - Weight increased [Unknown]
  - Dysstasia [Unknown]
  - Arthritis [Unknown]
  - Back pain [Unknown]
  - Meniscus injury [Unknown]
  - Gait disturbance [Unknown]
  - Pain [Unknown]
  - Musculoskeletal pain [Unknown]
  - Pain in extremity [Unknown]
  - Arthralgia [Unknown]

NARRATIVE: CASE EVENT DATE: 2013
